FAERS Safety Report 5109182-X (Version None)
Quarter: 2006Q3

REPORT INFORMATION
  Report Type: 
  Country: None (occurrence: None)
  Receive Date: 20060920
  Receipt Date: 20060915
  Transmission Date: 20061208
  Serious: Yes (Other)
  Sender: FDA-Public Use
  Company Number: 2006PK01873

PATIENT
  Age: 64 Year
  Sex: Female

DRUGS (2)
  1. ATACAND HCT [Suspect]
     Indication: HYPERTENSION
  2. CYCLOPHOSPHAMIDE [Interacting]
     Indication: BREAST CANCER

REACTIONS (2)
  - DRUG INTERACTION [None]
  - WHITE BLOOD CELL COUNT DECREASED [None]
